FAERS Safety Report 15433861 (Version 2)
Quarter: 2019Q2

REPORT INFORMATION
  Report Type: Spontaneous
  Country: US (occurrence: US)
  Receive Date: 20180927
  Receipt Date: 20190404
  Transmission Date: 20190711
  Serious: No
  Sender: FDA-Public Use
  Company Number: US-SHIRE-US201837165

PATIENT
  Age: 77 Year
  Sex: Female
  Weight: 50.79 kg

DRUGS (2)
  1. XIIDRA [Suspect]
     Active Substance: LIFITEGRAST
     Indication: DRY EYE
     Dosage: 1 GTT
  2. RESTASIS [Concomitant]
     Active Substance: CYCLOSPORINE

REACTIONS (4)
  - Instillation site irritation [Not Recovered/Not Resolved]
  - Instillation site pain [Unknown]
  - Drug ineffective [Not Recovered/Not Resolved]
  - Instillation site lacrimation [Unknown]

NARRATIVE: CASE EVENT DATE: 201803
